FAERS Safety Report 8718935 (Version 2)
Quarter: 2013Q4

REPORT INFORMATION
  Report Type: Report from Study
  Country: US (occurrence: US)
  Receive Date: 20120809
  Receipt Date: 20131108
  Transmission Date: 20140711
  Serious: Yes (Congenital Anomaly, Other)
  Sender: FDA-Public Use
  Company Number: US-009507513-2011SP008793

PATIENT
  Sex: Female

DRUGS (9)
  1. RIBAVIRIN (+) INTERFERON ALFA-2B [Suspect]
     Dosage: UNK
     Route: 064
     Dates: start: 2009, end: 20100604
  2. PEGINTRON [Suspect]
     Dosage: UNK
     Route: 064
     Dates: start: 2009, end: 20100604
  3. PROVENTIL [Suspect]
     Indication: ASTHMA
     Dosage: UNK, PRN
     Route: 064
  4. EFFEXOR [Suspect]
     Indication: DEPRESSION
     Dosage: 75 MG, UNK
     Route: 064
     Dates: start: 2007, end: 20101130
  5. SUBOXONE [Suspect]
     Indication: DRUG DEPENDENCE
     Dosage: 10 MG, UNK
     Route: 064
     Dates: start: 200906, end: 20101008
  6. SUBUTEX [Suspect]
     Indication: DRUG DEPENDENCE
     Dosage: 8 MG, UNK
     Route: 064
     Dates: start: 20101009
  7. ZOLOFT [Suspect]
     Indication: DEPRESSION
     Dosage: 50 MG, UNK
     Route: 064
     Dates: start: 20101130
  8. VALTREX [Suspect]
     Indication: HERPES VIRUS INFECTION
     Dosage: 1 G, UNK
     Route: 064
     Dates: start: 20110419
  9. VITAMINS (UNSPECIFIED) [Concomitant]
     Dosage: UNK
     Route: 064
     Dates: start: 20100930

REACTIONS (2)
  - Ventricular septal defect [Unknown]
  - Foetal exposure during pregnancy [Recovered/Resolved]
